FAERS Safety Report 4868187-4 (Version None)
Quarter: 2005Q4

REPORT INFORMATION
  Report Type: 
  Country: None (occurrence: None)
  Receive Date: 20051229
  Receipt Date: 20051221
  Transmission Date: 20060501
  Serious: Yes (Hospitalization)
  Sender: FDA-Public Use
  Company Number: US-BRISTOL-MYERS SQUIBB COMPANY-13228093

PATIENT
  Sex: Female

DRUGS (8)
  1. LODOSYN TABS [Suspect]
     Route: 048
  2. REQUIP [Concomitant]
  3. LABETALOL HCL [Concomitant]
  4. DILTIAZEM HCL [Concomitant]
  5. PLAVIX [Concomitant]
  6. ZOLOFT [Concomitant]
  7. HYZAAR [Concomitant]
  8. ASPIRIN [Concomitant]

REACTIONS (2)
  - HIP FRACTURE [None]
  - OSTEOARTHRITIS [None]
